FAERS Safety Report 8802020 (Version 5)
Quarter: 2015Q2

REPORT INFORMATION
  Report Type: Spontaneous
  Country: US (occurrence: US)
  Receive Date: 20120921
  Receipt Date: 20150615
  Transmission Date: 20150821
  Serious: Yes (Hospitalization, Other)
  Sender: FDA-Public Use
  Company Number: US-BAYER-2012-096421

PATIENT
  Age: 32 Year
  Sex: Female
  Weight: 83.45 kg

DRUGS (23)
  1. YASMIN [Suspect]
     Active Substance: DROSPIRENONE\ETHINYL ESTRADIOL
     Indication: PREMENSTRUAL SYNDROME
     Dosage: UNK
     Dates: start: 200203, end: 20050608
  2. PRISTIQ EXTENDED RELEASE [Concomitant]
     Active Substance: DESVENLAFAXINE SUCCINATE
     Dosage: UNK
     Dates: start: 2001
  3. SYMBICORT [Concomitant]
     Active Substance: BUDESONIDE\FORMOTEROL FUMARATE DIHYDRATE
     Indication: ASTHMA
     Dosage: UNK UNK, PRN
     Dates: start: 2002
  4. XOPENEX [Concomitant]
     Active Substance: LEVALBUTEROL HYDROCHLORIDE
     Indication: ASTHMA
     Dosage: UNK UNK, PRN
     Dates: start: 2002
  5. ATROVENT [Concomitant]
     Active Substance: IPRATROPIUM BROMIDE
     Indication: ASTHMA
  6. SYNTHROID [Concomitant]
     Active Substance: LEVOTHYROXINE SODIUM
     Indication: HYPOTHYROIDISM
     Dosage: 0.088 MG, UNK
     Dates: start: 2001
  7. PREDNISONE. [Concomitant]
     Active Substance: PREDNISONE
     Indication: ASTHMA
     Dosage: TAPERING DOSE
     Dates: start: 20050530, end: 20050531
  8. PULMICORT TURBUHALER [Concomitant]
     Active Substance: BUDESONIDE
     Dosage: UNK
     Dates: start: 20050608
  9. YASMIN [Suspect]
     Active Substance: DROSPIRENONE\ETHINYL ESTRADIOL
     Indication: ACNE
  10. PREDNISONE. [Concomitant]
     Active Substance: PREDNISONE
     Indication: ASTHMA
     Dosage: UNK
     Dates: start: 2002
  11. MUCINEX [Concomitant]
     Active Substance: GUAIFENESIN
     Indication: INFECTION
     Dosage: UNK UNK, PRN
     Dates: start: 20050530
  12. YASMIN [Suspect]
     Active Substance: DROSPIRENONE\ETHINYL ESTRADIOL
     Indication: CONTRACEPTION
  13. LEVAQUIN [Concomitant]
     Active Substance: LEVOFLOXACIN
     Indication: INFECTION
     Dosage: 500 MG, BID
     Dates: start: 20050530, end: 20050606
  14. FORADIL [Concomitant]
     Active Substance: FORMOTEROL FUMARATE
     Dosage: 12 ?G, UNK
     Dates: start: 20050608
  15. SOLU-MEDROL [Concomitant]
     Active Substance: METHYLPREDNISOLONE SODIUM SUCCINATE
  16. MECLIZINE [Concomitant]
     Active Substance: MECLIZINE\MECLIZINE HYDROCHLORIDE
     Indication: VERTIGO
     Dosage: 25MG, TAKE 1 PRN
  17. LORTAB [Concomitant]
     Active Substance: ACETAMINOPHEN\HYDROCODONE BITARTRATE
  18. EFFEXOR [Concomitant]
     Active Substance: VENLAFAXINE HYDROCHLORIDE
     Indication: DEPRESSION
     Dosage: UNK
     Dates: start: 2001
  19. PREDNISONE. [Concomitant]
     Active Substance: PREDNISONE
     Indication: ASTHMA
     Dosage: UNK
     Dates: start: 2003
  20. ZYRTEC [Concomitant]
     Active Substance: CETIRIZINE HYDROCHLORIDE
     Dosage: UNK
     Dates: start: 20050608
  21. PRILOSEC [Concomitant]
     Active Substance: OMEPRAZOLE MAGNESIUM
     Indication: REFLUX GASTRITIS
     Dosage: UNK
     Dates: start: 20050608
  22. LEVAQUIN [Concomitant]
     Active Substance: LEVOFLOXACIN
     Indication: ASTHMA
  23. ROCEPHIN [Concomitant]
     Active Substance: CEFTRIAXONE SODIUM
     Indication: ASTHMA
     Dosage: 1 G, UNK
     Route: 030
     Dates: start: 20050530

REACTIONS (29)
  - Exercise tolerance decreased [Recovered/Resolved]
  - Musculoskeletal disorder [Recovered/Resolved]
  - Cerebrovascular accident [Recovered/Resolved]
  - Hemiparesis [Recovered/Resolved]
  - Dysarthria [Recovered/Resolved]
  - Tachycardia [None]
  - Emotional disorder [None]
  - Asthenia [None]
  - Disturbance in attention [None]
  - Internal haemorrhage [None]
  - Mobility decreased [Recovered/Resolved]
  - Palpitations [None]
  - Pain [None]
  - Speech disorder [None]
  - Cognitive disorder [Recovered/Resolved]
  - Transient ischaemic attack [None]
  - Affect lability [Recovered/Resolved]
  - Peripheral coldness [Recovered/Resolved]
  - Mood swings [None]
  - Intra-abdominal haemorrhage [None]
  - Injury [Recovered/Resolved]
  - Hemiplegia [Recovered/Resolved]
  - Paralysis [Recovered/Resolved]
  - Headache [None]
  - General physical health deterioration [None]
  - Syncope [None]
  - Nausea [None]
  - Cerebrovascular accident [Recovered/Resolved]
  - Facial paresis [Recovered/Resolved]

NARRATIVE: CASE EVENT DATE: 200506
